FAERS Safety Report 20059023 (Version 1)
Quarter: 2021Q4

REPORT INFORMATION
  Report Type: Spontaneous
  Country: FR (occurrence: FR)
  Receive Date: 20211111
  Receipt Date: 20211111
  Transmission Date: 20220303
  Serious: Yes (Hospitalization)
  Sender: FDA-Public Use
  Company Number: FR-FRESENIUS KABI-FK202111602

PATIENT
  Age: 75 Year
  Sex: Female
  Weight: 53 kg

DRUGS (19)
  1. LEUCOVORIN CALCIUM [Suspect]
     Active Substance: LEUCOVORIN CALCIUM
     Indication: Adenocarcinoma pancreas
     Dosage: 1ST CURE (C1)
     Route: 065
     Dates: start: 20210412
  2. FLUOROURACIL [Suspect]
     Active Substance: FLUOROURACIL
     Indication: Adenocarcinoma pancreas
     Dosage: 1ST CURE (C1)
     Route: 065
     Dates: start: 20210412
  3. OXALIPLATIN [Suspect]
     Active Substance: OXALIPLATIN
     Dosage: AT CURE 4 REINTRODUCTION AT 70 PERCENT OF THE DOSAGE
     Route: 042
     Dates: start: 20210525
  4. OXALIPLATIN [Suspect]
     Active Substance: OXALIPLATIN
     Dosage: AT CURE 5 OVER 2 HOURS 70 PERCENT OF THE DOSE OVER 2 HOURS
     Route: 042
     Dates: start: 20210608
  5. IRINOTECAN [Suspect]
     Active Substance: IRINOTECAN
     Dosage: 2ND CURE (C2)
     Route: 042
     Dates: start: 20210427
  6. IRINOTECAN [Suspect]
     Active Substance: IRINOTECAN
     Dosage: AT CURE 3
     Route: 042
     Dates: start: 20210511
  7. IRINOTECAN [Suspect]
     Active Substance: IRINOTECAN
     Dosage: COMPLETE DOSE WITH AN INFUSION OVER 3 HOURS AT CURE 5
     Route: 042
     Dates: start: 20210608
  8. IRINOTECAN [Suspect]
     Active Substance: IRINOTECAN
     Indication: Adenocarcinoma pancreas
     Dosage: 1ST CURE (C1)
     Route: 042
     Dates: start: 20210412
  9. CLORAZEPATE DIPOTASSIUM [Suspect]
     Active Substance: CLORAZEPATE DIPOTASSIUM
     Indication: Premedication
     Dosage: 10 MG, STARTED BEFORE CHEMOTHERAPY
     Route: 065
     Dates: start: 20210608
  10. OXALIPLATIN [Suspect]
     Active Substance: OXALIPLATIN
     Indication: Adenocarcinoma pancreas
     Dosage: 85 MG/M2, (INFUSED OVER 4 HOURS INSTEAD OF 2)
     Route: 042
     Dates: start: 20210427
  11. APREPITANT [Concomitant]
     Active Substance: APREPITANT
     Dosage: 125 MG (D1)
     Route: 065
  12. APREPITANT [Concomitant]
     Active Substance: APREPITANT
     Dosage: 80 MG, D2 AND D3
     Route: 065
  13. FILGRASTIM [Concomitant]
     Active Substance: FILGRASTIM
     Dosage: PER DAY AT D5 OF THE CURE
     Route: 058
  14. PANCREATIN [Concomitant]
     Active Substance: PANCRELIPASE
     Dosage: 40000 IU 2 IN MORNING, 2 AT LUNCH AND 2 IN EVENING
     Route: 065
  15. LANSOPRAZOLE [Concomitant]
     Active Substance: LANSOPRAZOLE
     Dosage: 30 MG, 1 IN MORNING
     Route: 065
  16. TINZAPARIN SODIUM [Concomitant]
     Active Substance: TINZAPARIN SODIUM
     Dosage: 0.45 ML, 1X/DAY
     Route: 058
  17. ONDANSETRON [Concomitant]
     Active Substance: ONDANSETRON
     Indication: Nausea
     Dosage: 8 MG
     Route: 065
  18. PENICILLIN V BENZATHINE [Concomitant]
     Active Substance: PENICILLIN V BENZATHINE
     Dosage: 1 MIU, 1 IN MORNING AND 1 IN EVENING
     Route: 065
  19. TRIMEBUTINE [Concomitant]
     Active Substance: TRIMEBUTINE
     Indication: Pain
     Dosage: 100 MG
     Route: 065

REACTIONS (7)
  - Aphasia [Recovering/Resolving]
  - Diarrhoea [Recovering/Resolving]
  - Muscle spasms [Recovering/Resolving]
  - Neuropathy peripheral [Recovering/Resolving]
  - Dysarthria [Recovering/Resolving]
  - Asthenia [Recovering/Resolving]
  - Nausea [Recovering/Resolving]

NARRATIVE: CASE EVENT DATE: 20210412
